FAERS Safety Report 5311212-7 (Version None)
Quarter: 2007Q2

REPORT INFORMATION
  Report Type: 
  Country: None (occurrence: None)
  Receive Date: 20070423
  Receipt Date: 20070410
  Transmission Date: 20071010
  Serious: Yes (Other)
  Sender: FDA-Public Use
  Company Number: 16265

PATIENT
  Age: 44 Year
  Sex: Female

DRUGS (1)
  1. METHYLENE BLUE [Suspect]
     Indication: SURGERY
     Dates: start: 20070315, end: 20070315

REACTIONS (2)
  - PHOTOSENSITIVITY REACTION [None]
  - SKIN REACTION [None]
